FAERS Safety Report 12711902 (Version 1)
Quarter: 2016Q3

REPORT INFORMATION
  Report Type: Report from Study
  Country: KE (occurrence: KE)
  Receive Date: 20160902
  Receipt Date: 20160902
  Transmission Date: 20161109
  Serious: Yes (Death, Hospitalization)
  Sender: FDA-Public Use
  Company Number: PHHY2016KE119673

PATIENT
  Sex: Male

DRUGS (1)
  1. GLIVEC [Suspect]
     Active Substance: IMATINIB MESYLATE
     Indication: CHRONIC MYELOID LEUKAEMIA
     Dosage: 400 MG, UNK
     Route: 065

REACTIONS (6)
  - Chronic myeloid leukaemia [Fatal]
  - Peripheral swelling [Unknown]
  - Blood potassium decreased [Unknown]
  - Tonsillitis [Unknown]
  - Respiratory distress [Unknown]
  - Malignant neoplasm progression [Fatal]
